FAERS Safety Report 4415651-8 (Version None)
Quarter: 2004Q2

REPORT INFORMATION
  Report Type: 
  Country: None (occurrence: None)
  Receive Date: 20040628
  Receipt Date: 20030917
  Transmission Date: 20050107
  Serious: Yes (Hospitalization, Disabling)
  Sender: FDA-Public Use
  Company Number: 347308

PATIENT
  Age: 84 Year
  Sex: Male
  Weight: 70.3 kg

DRUGS (1)
  1. CELLCEPT [Suspect]
     Indication: MYASTHENIA GRAVIS
     Dosage: ORAL
     Route: 048
     Dates: start: 20030111, end: 20030822

REACTIONS (2)
  - ABDOMINAL PAIN UPPER [None]
  - ULCER [None]
